FAERS Safety Report 5002305-2 (Version None)
Quarter: 2006Q2

REPORT INFORMATION
  Report Type: 
  Country: None (occurrence: None)
  Receive Date: 20060512
  Receipt Date: 20060502
  Transmission Date: 20061013
  Serious: Yes (Other)
  Sender: FDA-Public Use
  Company Number: SP-2006-002995

PATIENT
  Age: 40 Year
  Sex: Female
  Weight: 69.5 kg

DRUGS (1)
  1. OLMETEC [Suspect]
     Indication: HYPERTENSION
     Dosage: 40 MG QD PO
     Route: 048
     Dates: start: 20060404, end: 20060411

REACTIONS (3)
  - DIZZINESS [None]
  - ERYTHEMA [None]
  - SOMATOFORM DISORDER [None]
